FAERS Safety Report 17870684 (Version 5)
Quarter: 2022Q1

REPORT INFORMATION
  Report Type: Report from Study
  Country: FR (occurrence: FR)
  Receive Date: 20200608
  Receipt Date: 20220206
  Transmission Date: 20220423
  Serious: Yes (Hospitalization)
  Sender: FDA-Public Use
  Company Number: None

PATIENT
  Sex: Female

DRUGS (8)
  1. ADAKVEO [Suspect]
     Active Substance: CRIZANLIZUMAB-TMCA
     Indication: Product used for unknown indication
     Dosage: UNK
     Route: 065
     Dates: start: 20191219, end: 20191219
  2. ADAKVEO [Suspect]
     Active Substance: CRIZANLIZUMAB-TMCA
     Dosage: UNK
     Route: 065
     Dates: start: 20200117, end: 20200117
  3. ADAKVEO [Suspect]
     Active Substance: CRIZANLIZUMAB-TMCA
     Dosage: UNK
     Route: 065
     Dates: start: 20200214, end: 20200214
  4. ADAKVEO [Suspect]
     Active Substance: CRIZANLIZUMAB-TMCA
     Dosage: UNK
     Route: 065
     Dates: start: 20200313, end: 20200313
  5. ADAKVEO [Suspect]
     Active Substance: CRIZANLIZUMAB-TMCA
     Dosage: UNK
     Route: 065
     Dates: start: 20200410, end: 20200410
  6. ADAKVEO [Suspect]
     Active Substance: CRIZANLIZUMAB-TMCA
     Dosage: UNK
     Route: 065
     Dates: start: 20200507, end: 20200507
  7. ADAKVEO [Suspect]
     Active Substance: CRIZANLIZUMAB-TMCA
     Dosage: UNK
     Route: 041
  8. ADAKVEO [Suspect]
     Active Substance: CRIZANLIZUMAB-TMCA
     Dosage: UNK
     Route: 041

REACTIONS (11)
  - Sickle cell anaemia with crisis [Unknown]
  - Blood lactate dehydrogenase increased [Unknown]
  - Viral infection [Unknown]
  - Bone pain [Unknown]
  - Pyrexia [Unknown]
  - Asthenia [Unknown]
  - Superficial vein thrombosis [Unknown]
  - Catheter site infection [Not Recovered/Not Resolved]
  - C-reactive protein increased [Unknown]
  - Pruritus [Unknown]
  - Arthralgia [Unknown]
